FAERS Safety Report 15288043 (Version 3)
Quarter: 2020Q2

REPORT INFORMATION
  Report Type: Spontaneous
  Country: US (occurrence: US)
  Receive Date: 20180817
  Receipt Date: 20200424
  Transmission Date: 20200713
  Serious: No
  Sender: FDA-Public Use
  Company Number: US-PFIZER INC-2018141665

PATIENT
  Age: 9 Year
  Sex: Male

DRUGS (3)
  1. GENOTROPIN [Suspect]
     Active Substance: SOMATROPIN
     Dosage: 1.2 MG, DAILY
     Dates: start: 20100818
  2. GENOTROPIN [Suspect]
     Active Substance: SOMATROPIN
     Dosage: 1 MG, 1X/DAY (NIGHTLY)
     Dates: start: 2011
  3. GENOTROPIN [Suspect]
     Active Substance: SOMATROPIN
     Dosage: 1.5 MG, UNK
     Dates: start: 2009

REACTIONS (4)
  - Product dose omission [Unknown]
  - Device issue [Unknown]
  - Wrong technique in device usage process [Unknown]
  - Tri-iodothyronine increased [Unknown]

NARRATIVE: CASE EVENT DATE: 20170221
